FAERS Safety Report 20566156 (Version 2)
Quarter: 2022Q2

REPORT INFORMATION
  Report Type: Report from Study
  Country: US (occurrence: US)
  Receive Date: 20220308
  Receipt Date: 20220524
  Transmission Date: 20220720
  Serious: No
  Sender: FDA-Public Use
  Company Number: US-BRISTOL-MYERS SQUIBB COMPANY-BMS-2022-032329

PATIENT
  Age: 64 Year
  Sex: Female

DRUGS (6)
  1. APIXABAN [Suspect]
     Active Substance: APIXABAN
     Indication: Deep vein thrombosis
     Route: 048
     Dates: start: 2015
  2. APIXABAN [Suspect]
     Active Substance: APIXABAN
     Indication: Pulmonary embolism
  3. PANTOPRAZOLE [Concomitant]
     Active Substance: PANTOPRAZOLE
     Indication: Prophylaxis
     Route: 065
  4. VITAMINS [Concomitant]
     Active Substance: VITAMINS
     Indication: Product used for unknown indication
  5. VITAMINS [Concomitant]
     Active Substance: VITAMINS
     Route: 065
  6. ACID REDUCER PANTOPRAZOLE SODIUM EC [Concomitant]
     Indication: Product used for unknown indication
     Route: 065

REACTIONS (2)
  - Feeling abnormal [Recovered/Resolved]
  - Tinnitus [Unknown]

NARRATIVE: CASE EVENT DATE: 20150101
